FAERS Safety Report 10069646 (Version 2)
Quarter: 2014Q2

REPORT INFORMATION
  Report Type: Spontaneous
  Country: GB (occurrence: GB)
  Receive Date: 20140410
  Receipt Date: 20140505
  Transmission Date: 20141212
  Serious: Yes (Life-Threatening, Hospitalization)
  Sender: FDA-Public Use
  Company Number: GB-DRREDDYS-GER/UKI/14/0039508

PATIENT
  Age: 92 Year
  Sex: Female

DRUGS (9)
  1. ATORVASTATIN [Suspect]
     Indication: HYPERCHOLESTEROLAEMIA
     Route: 048
     Dates: end: 20140320
  2. ATORVASTATIN [Suspect]
     Indication: MYOCARDIAL ISCHAEMIA
  3. ASPIRIN [Concomitant]
     Indication: MYOCARDIAL ISCHAEMIA
     Route: 048
     Dates: end: 20140320
  4. BISOPROLOL [Concomitant]
     Indication: PRODUCT USED FOR UNKNOWN INDICATION
  5. BUMETANIDE [Concomitant]
     Indication: CARDIAC FAILURE
     Route: 048
     Dates: end: 20140320
  6. BUMETANIDE [Concomitant]
     Indication: MYOCARDIAL ISCHAEMIA
  7. ISOSORBIDE MONONITRATE [Concomitant]
     Indication: MYOCARDIAL ISCHAEMIA
     Route: 048
  8. RAMIPRIL [Concomitant]
     Indication: CARDIAC FAILURE
     Route: 048
     Dates: end: 20140320
  9. WARFARIN [Concomitant]
     Indication: ATRIAL FIBRILLATION
     Route: 048

REACTIONS (3)
  - Renal failure acute [Not Recovered/Not Resolved]
  - Haematuria [Not Recovered/Not Resolved]
  - Oliguria [Not Recovered/Not Resolved]
